FAERS Safety Report 9397375 (Version 2)
Quarter: 2013Q3

REPORT INFORMATION
  Report Type: Report from Study
  Country: DE (occurrence: DE)
  Receive Date: 20130712
  Receipt Date: 20130805
  Transmission Date: 20140515
  Serious: Yes (Death, Hospitalization)
  Sender: FDA-Public Use
  Company Number: PHHO2013DE009130

PATIENT
  Age: 83 Year
  Sex: Female
  Weight: 47.5 kg

DRUGS (6)
  1. EVEROLIMUS [Suspect]
     Indication: BREAST CANCER METASTATIC
     Dosage: 10 MG PER DAY
     Route: 048
     Dates: start: 20120717
  2. EXEMESTANE [Suspect]
     Indication: BREAST CANCER METASTATIC
     Dosage: 25 MG, PER DAY
     Route: 048
     Dates: start: 20120717
  3. TORASEMID [Concomitant]
     Indication: HYPERTENSION
     Dosage: HALF PER DAY
     Dates: start: 200805
  4. SIMVASTATIN [Concomitant]
     Indication: BLOOD CHOLESTEROL
     Dosage: 40 MG, QD
     Dates: start: 201205
  5. AMLODIPIN/ATORVASTATIN [Concomitant]
     Indication: HYPERTENSION
     Dosage: 10 MG, QD
     Route: 048
  6. NOCTAMID [Concomitant]
     Indication: SLEEP DISORDER
     Dosage: UNK
     Dates: start: 20120815

REACTIONS (1)
  - Pneumonia [Fatal]
